FAERS Safety Report 13102161 (Version 1)
Quarter: 2017Q1

REPORT INFORMATION
  Report Type: Spontaneous
  Country: None (occurrence: US)
  Receive Date: 20170110
  Receipt Date: 20170110
  Transmission Date: 20170428
  Serious: No
  Sender: FDA-Public Use
  Company Number: US-KALEO, INC-EVZI20160015

PATIENT
  Age: 3 Decade
  Sex: Male

DRUGS (1)
  1. EVZIO [Suspect]
     Active Substance: NALOXONE HYDROCHLORIDE
     Indication: OVERDOSE
     Dosage: TWICE IM OR SC
     Dates: start: 20161112, end: 20161112

REACTIONS (1)
  - Confusional state [None]

NARRATIVE: CASE EVENT DATE: 20161112
